FAERS Safety Report 15449503 (Version 4)
Quarter: 2023Q2

REPORT INFORMATION
  Report Type: Report from Study
  Country: DE (occurrence: DE)
  Receive Date: 20181001
  Receipt Date: 20230518
  Transmission Date: 20230721
  Serious: Yes (Life-Threatening)
  Sender: FDA-Public Use
  Company Number: None

PATIENT
  Age: 83 Year
  Sex: Female
  Weight: 71 kg

DRUGS (30)
  1. ASPIRIN [Suspect]
     Active Substance: ASPIRIN
     Indication: Thrombosis prophylaxis
     Dosage: 100 MILLIGRAM DAILY;
     Route: 048
  2. HEPARIN [Suspect]
     Active Substance: HEPARIN SODIUM
     Indication: Thrombosis prophylaxis
     Route: 058
     Dates: start: 19950913, end: 19950922
  3. METAMIZOLE [Suspect]
     Active Substance: METAMIZOLE
     Indication: Pain
     Route: 048
     Dates: start: 19950908, end: 19950908
  4. HEPARIN [Suspect]
     Active Substance: HEPARIN SODIUM
     Indication: Thrombosis prophylaxis
     Route: 058
     Dates: start: 19950913, end: 19950922
  5. BROMAZEPAM [Suspect]
     Active Substance: BROMAZEPAM
     Indication: Sedation
     Route: 048
     Dates: start: 19950907, end: 19950912
  6. METHIMAZOLE [Suspect]
     Active Substance: METHIMAZOLE
     Indication: Thyroid disorder
     Dates: start: 19950916, end: 19950917
  7. METOCLOPRAMIDE HYDROCHLORIDE [Suspect]
     Active Substance: METOCLOPRAMIDE HYDROCHLORIDE
     Indication: Vomiting
     Route: 048
     Dates: start: 19950909, end: 19950923
  8. BACTRIM [Suspect]
     Active Substance: SULFAMETHOXAZOLE\TRIMETHOPRIM
     Indication: Urinary tract infection
     Route: 048
     Dates: start: 19950913, end: 19950915
  9. SODIUM PERCHLORATE [Suspect]
     Active Substance: SODIUM PERCHLORATE
     Indication: Thyroid disorder
     Route: 048
     Dates: start: 19950907, end: 19950916
  10. ADALAT [Suspect]
     Active Substance: NIFEDIPINE
     Indication: Cardiac failure
     Route: 048
     Dates: start: 19950907, end: 19950914
  11. PIRITRAMIDE [Suspect]
     Active Substance: PIRITRAMIDE
     Indication: Pain
     Route: 065
     Dates: start: 19950908, end: 19950909
  12. MOLSIDOMINE [Suspect]
     Active Substance: MOLSIDOMINE
     Indication: Coronary artery disease
     Dosage: 2 DOSAGE FORMS DAILY;
     Route: 048
  13. OFLOXACIN [Suspect]
     Active Substance: OFLOXACIN
     Indication: Urinary tract infection
     Route: 065
     Dates: start: 19950917, end: 19950923
  14. AQUAPHOR [Suspect]
     Active Substance: PETROLATUM
     Indication: Polyuria
     Route: 065
     Dates: start: 19950907, end: 19950912
  15. AQUAPHOR [Suspect]
     Active Substance: PETROLATUM
     Indication: Polyuria
     Route: 065
     Dates: start: 19950907, end: 19950912
  16. AQUAPHOR [Suspect]
     Active Substance: PETROLATUM
     Indication: Polyuria
     Route: 065
     Dates: start: 19950907, end: 19950912
  17. NITROGLYCERIN [Concomitant]
     Active Substance: NITROGLYCERIN
     Indication: Angiogram
     Dosage: 2 (DAILY DOSE), , RESPIRATORY
     Route: 055
     Dates: start: 19950907, end: 19950907
  18. ISOSORBIDE MONONITRATE [Concomitant]
     Active Substance: ISOSORBIDE MONONITRATE
     Indication: Coronary artery disease
     Dosage: 20 MILLIGRAM DAILY;
     Route: 048
     Dates: end: 19950923
  19. FAMOTIDINE [Concomitant]
     Active Substance: FAMOTIDINE
     Indication: Prophylaxis
     Dosage: 1 DOSAGE FORMS DAILY;
     Route: 048
  20. NISOLDIPINE [Concomitant]
     Active Substance: NISOLDIPINE
     Indication: Cardiac failure
     Route: 065
  21. CEFUROXIME SODIUM [Concomitant]
     Active Substance: CEFUROXIME SODIUM
     Indication: Product used for unknown indication
     Dosage: 3 GRAM DAILY; 3 G (DAILY DOSE)
  22. PREDNISOLONE [Concomitant]
     Active Substance: PREDNISOLONE
     Indication: Product used for unknown indication
     Dosage: 200 MILLIGRAM DAILY;
  23. CALCIUM CHLORIDE;CHLORINE;POTASSIUM CHLORIDE;SODIUM CHLORIDE [Concomitant]
     Indication: Product used for unknown indication
     Dosage: 1500 ML DAILY;
  24. BARIUM SULFATE [Concomitant]
     Active Substance: BARIUM SULFATE
     Indication: Angiogram
     Dates: start: 19950907, end: 19950907
  25. OMEPRAZOLE SODIUM [Concomitant]
     Active Substance: OMEPRAZOLE SODIUM
     Indication: Product used for unknown indication
     Dosage: 1 DOSAGE FORMS DAILY;
  26. DIMETHINDENE MALEATE [Concomitant]
     Active Substance: DIMETHINDENE MALEATE
     Indication: Product used for unknown indication
     Dosage: 2 DOSAGE FORMS DAILY;
  27. AMBROXOL HYDROCHLORIDE [Concomitant]
     Active Substance: AMBROXOL HYDROCHLORIDE
     Indication: Pain
     Dosage: 6 DOSAGE FORMS DAILY;
     Dates: start: 19950908, end: 19950909
  28. ACETYLCYSTEINE [Concomitant]
     Active Substance: ACETYLCYSTEINE
     Indication: Product used for unknown indication
     Dosage: 3 DOSAGE FORMS DAILY;
  29. ISOSORBIDE MONONITRATE [Concomitant]
     Active Substance: ISOSORBIDE MONONITRATE
     Indication: Coronary artery disease
     Dosage: 20 MILLIGRAM DAILY;
     Dates: end: 19950923
  30. ASPIRIN DL-LYSINE [Concomitant]
     Active Substance: ASPIRIN DL-LYSINE
     Indication: Product used for unknown indication
     Dosage: 1 DOSAGE FORMS DAILY; 1 DF (DAILY DOSE)

REACTIONS (6)
  - Pain [Unknown]
  - Conjunctivitis [Recovering/Resolving]
  - Toxic epidermal necrolysis [Recovering/Resolving]
  - Stevens-Johnson syndrome [Recovering/Resolving]
  - Rash [Recovering/Resolving]
  - Mucosal erosion [Recovering/Resolving]

NARRATIVE: CASE EVENT DATE: 19950922
